FAERS Safety Report 9754126 (Version 1)
Quarter: 2013Q4

REPORT INFORMATION
  Report Type: Spontaneous
  Country: US (occurrence: US)
  Receive Date: 20131213
  Receipt Date: 20131213
  Transmission Date: 20140711
  Serious: No
  Sender: FDA-Public Use
  Company Number: US-GLAXOSMITHKLINE-A1023163A

PATIENT
  Age: 55 Year
  Sex: Female

DRUGS (2)
  1. NICORETTE MINT [Suspect]
     Indication: PRODUCT USED FOR UNKNOWN INDICATION
  2. NICORETTE OTC, UNSPECIFIED [Suspect]
     Indication: PRODUCT USED FOR UNKNOWN INDICATION

REACTIONS (3)
  - Blood pressure increased [Unknown]
  - Insomnia [Unknown]
  - Drug administration error [Unknown]
